FAERS Safety Report 19266280 (Version 1)
Quarter: 2021Q2

REPORT INFORMATION
  Report Type: Spontaneous
  Country: US (occurrence: US)
  Receive Date: 20210517
  Receipt Date: 20210517
  Transmission Date: 20210717
  Serious: Yes (Hospitalization)
  Sender: FDA-Public Use
  Company Number: US-EYEVANCE PHARMACEUTICALS-2021EYE00048

PATIENT
  Sex: Female
  Weight: 70.31 kg

DRUGS (6)
  1. LOSARTAN. [Concomitant]
     Active Substance: LOSARTAN
  2. PRAVASTATIN. [Concomitant]
     Active Substance: PRAVASTATIN
  3. FRESHKOTE [Suspect]
     Active Substance: POLYVINYL ALCOHOL\POVIDONE
     Indication: DRY EYE
     Dosage: 1 GTT IN EACH EYE, EVERY 4 HOURS
     Route: 047
  4. FRESHKOTE [Suspect]
     Active Substance: POLYVINYL ALCOHOL\POVIDONE
     Dosage: 1 GTT IN EACH EYE, 2X/DAY OR MORE
     Route: 047
  5. ASPIRIN. [Concomitant]
     Active Substance: ASPIRIN
  6. LEVOTHYROXINE. [Concomitant]
     Active Substance: LEVOTHYROXINE

REACTIONS (7)
  - Biliary colic [Unknown]
  - Product residue present [Not Recovered/Not Resolved]
  - Cholelithiasis [Unknown]
  - Product packaging difficult to open [Not Recovered/Not Resolved]
  - Cardiac disorder [Unknown]
  - Arthritis [Not Recovered/Not Resolved]
  - Product use complaint [Not Recovered/Not Resolved]

NARRATIVE: CASE EVENT DATE: 2019
